FAERS Safety Report 20421760 (Version 1)
Quarter: 2022Q1

REPORT INFORMATION
  Report Type: Spontaneous
  Country: US (occurrence: None)
  Receive Date: 20220203
  Receipt Date: 20220203
  Transmission Date: 20220424
  Serious: Yes (Other)
  Sender: FDA-Public Use
  Company Number: None

PATIENT
  Age: 55 Year
  Sex: Male

DRUGS (1)
  1. NALTREXONE HYDROCHLORIDE [Suspect]
     Active Substance: NALTREXONE HYDROCHLORIDE
     Indication: Alcoholism
     Dosage: FREQUENCY : DAILY;?
     Route: 048
     Dates: start: 20211019, end: 20211115

REACTIONS (6)
  - Dizziness [None]
  - Seizure [None]
  - Nausea [None]
  - Vomiting [None]
  - Hyperhidrosis [None]
  - Male sexual dysfunction [None]

NARRATIVE: CASE EVENT DATE: 20211115
